FAERS Safety Report 9760186 (Version 1)
Quarter: 2013Q4

REPORT INFORMATION
  Report Type: Spontaneous
  Country: US (occurrence: None)
  Receive Date: 20131212
  Receipt Date: 20131212
  Transmission Date: 20140711
  Serious: Yes (Other)
  Sender: FDA-Public Use
  Company Number: 2013-US-0426

PATIENT
  Age: 60 Year
  Sex: Male
  Weight: 64.41 kg

DRUGS (5)
  1. SANCUSO [Suspect]
     Indication: NAUSEA
     Dosage: ADMINISTERED ON CHEMO ?WEEKS
     Route: 061
     Dates: start: 20131023
  2. SANCUSO [Suspect]
     Indication: VOMITING
     Dosage: ADMINISTERED ON CHEMO ?WEEKS
     Route: 061
     Dates: start: 20131023
  3. CARDIZEM (DILTIAZEM) (UNKNOWN) (DILTIAZEM) [Concomitant]
  4. METOPROLOL [Concomitant]
  5. SYMAX (HYOSCYAMINE) [Concomitant]

REACTIONS (2)
  - Platelet count decreased [None]
  - White blood cell count decreased [None]
